FAERS Safety Report 25864692 (Version 1)
Quarter: 2025Q3

REPORT INFORMATION
  Report Type: Spontaneous
  Country: US (occurrence: US)
  Receive Date: 20250930
  Receipt Date: 20250930
  Transmission Date: 20251020
  Serious: No
  Sender: GALDERMA
  Company Number: US-GALDERMA-US2025017031

PATIENT

DRUGS (1)
  1. NEMLUVIO [Suspect]
     Active Substance: NEMOLIZUMAB-ILTO
     Indication: Dermatitis atopic
     Route: 058

REACTIONS (6)
  - Erythema [Unknown]
  - Skin swelling [Unknown]
  - Skin discomfort [Unknown]
  - Skin burning sensation [Unknown]
  - Rash papular [Unknown]
  - Skin weeping [Unknown]
